FAERS Safety Report 11830034 (Version 2)
Quarter: 2016Q1

REPORT INFORMATION
  Report Type: Spontaneous
  Country: IT (occurrence: IT)
  Receive Date: 20151213
  Receipt Date: 20160224
  Transmission Date: 20160525
  Serious: Yes (Other)
  Sender: FDA-Public Use
  Company Number: IT-009507513-1512ITA005424

PATIENT
  Age: 46 Year
  Sex: Female
  Weight: 55 kg

DRUGS (5)
  1. METFORMIN [Concomitant]
     Active Substance: METFORMIN HYDROCHLORIDE
     Route: 048
  2. TAPAZOLE [Concomitant]
     Active Substance: METHIMAZOLE
     Route: 048
  3. TESAVEL [Suspect]
     Active Substance: SITAGLIPTIN PHOSPHATE
     Indication: DIABETES MELLITUS
     Dosage: 100 MG, QD
     Route: 048
     Dates: end: 2015
  4. LANTUS [Concomitant]
     Active Substance: INSULIN GLARGINE
     Dosage: 10 IU ({100)
     Route: 058
  5. INDERAL [Concomitant]
     Active Substance: PROPRANOLOL HYDROCHLORIDE
     Route: 048

REACTIONS (2)
  - Drug eruption [Recovered/Resolved with Sequelae]
  - Pruritus generalised [Recovered/Resolved with Sequelae]

NARRATIVE: CASE EVENT DATE: 20150515
